FAERS Safety Report 15714656 (Version 1)
Quarter: 2018Q4

REPORT INFORMATION
  Report Type: Spontaneous
  Country: US (occurrence: US)
  Receive Date: 20181212
  Receipt Date: 20181212
  Transmission Date: 20190205
  Serious: No
  Sender: FDA-Public Use
  Company Number: None

PATIENT
  Age: 53 Year
  Sex: Female

DRUGS (1)
  1. METOPROLOL TARTRATE. [Suspect]
     Active Substance: METOPROLOL TARTRATE
     Route: 048
     Dates: start: 20181128, end: 20181212

REACTIONS (3)
  - Product dispensing error [None]
  - Dizziness [None]
  - Wrong product administered [None]

NARRATIVE: CASE EVENT DATE: 20181128
